FAERS Safety Report 8879290 (Version 3)
Quarter: 2013Q1

REPORT INFORMATION
  Report Type: Spontaneous
  Country: AT (occurrence: AT)
  Receive Date: 20121101
  Receipt Date: 20130115
  Transmission Date: 20140127
  Serious: Yes (Death)
  Sender: FDA-Public Use
  Company Number: AT-BIOGENIDEC-2012BI047550

PATIENT
  Sex: Female

DRUGS (12)
  1. TYSABRI [Suspect]
     Indication: MULTIPLE SCLEROSIS
     Route: 042
     Dates: start: 201011, end: 20120820
  2. FAMPYRA [Concomitant]
     Indication: PRODUCT USED FOR UNKNOWN INDICATION
     Route: 048
     Dates: start: 201207
  3. FLUPENTIXOL [Concomitant]
  4. MELITRACEN [Concomitant]
  5. PANTOLOC [Concomitant]
  6. MODASOMIL [Concomitant]
  7. NABILONE [Concomitant]
  8. SIRDALUD [Concomitant]
  9. SELOKEN [Concomitant]
  10. DIOVAN [Concomitant]
  11. ZYPREXA [Concomitant]
  12. BOTOX [Concomitant]

REACTIONS (1)
  - Completed suicide [Fatal]
